FAERS Safety Report 11026092 (Version 2)
Quarter: 2015Q2

REPORT INFORMATION
  Report Type: Spontaneous
  Country: US (occurrence: US)
  Receive Date: 20150414
  Receipt Date: 20150504
  Transmission Date: 20150821
  Serious: No
  Sender: FDA-Public Use
  Company Number: US-PFIZER INC-2015121903

PATIENT
  Age: 79 Year
  Sex: Female

DRUGS (7)
  1. LOSARTAN [Suspect]
     Active Substance: LOSARTAN
     Indication: HYPERTENSION
     Dosage: 25 MG, 1X/DAY
  2. BRINZOLAMIDE [Suspect]
     Active Substance: BRINZOLAMIDE
     Dosage: 1 %, UNK
     Dates: start: 2014
  3. NEXIUM [Concomitant]
     Active Substance: ESOMEPRAZOLE MAGNESIUM
     Dosage: 40 MG, UNK
     Dates: start: 20150331
  4. ASPIRIN. [Concomitant]
     Active Substance: ASPIRIN
     Dosage: 81 MG, UNK
     Dates: start: 20150331
  5. METFORMIN HCL [Suspect]
     Active Substance: METFORMIN HYDROCHLORIDE
     Indication: BLOOD GLUCOSE
     Dosage: 2000 MG, DAILY
  6. LEVOTHYROXINE SODIUM. [Suspect]
     Active Substance: LEVOTHYROXINE SODIUM
     Dosage: UNK
  7. ISOSORBIDE [Concomitant]
     Active Substance: ISOSORBIDE
     Indication: ANGINA PECTORIS
     Dosage: 10 MG, 2X/DAY
     Dates: start: 20150331

REACTIONS (3)
  - Malaise [Unknown]
  - Rash pruritic [Unknown]
  - Drug intolerance [Recovered/Resolved]

NARRATIVE: CASE EVENT DATE: 2014
